FAERS Safety Report 7887455-5 (Version None)
Quarter: 2011Q4

REPORT INFORMATION
  Report Type: 
  Country: None (occurrence: None)
  Receive Date: 20111102
  Receipt Date: 20110719
  Transmission Date: 20120403
  Serious: No
  Sender: FDA-Public Use
  Company Number: US-AMGEN-USASP2011036614

PATIENT
  Sex: Female

DRUGS (1)
  1. ENBREL [Suspect]
     Indication: RHEUMATOID ARTHRITIS
     Dosage: 50 MG, QWK
     Dates: start: 20101120

REACTIONS (9)
  - ALOPECIA [None]
  - INJECTION SITE ERYTHEMA [None]
  - ACNE [None]
  - DIARRHOEA [None]
  - HEPATIC ENZYME INCREASED [None]
  - INJECTION SITE PRURITUS [None]
  - BLOOD GLUCOSE ABNORMAL [None]
  - INJECTION SITE SWELLING [None]
  - INJECTION SITE WARMTH [None]
